FAERS Safety Report 17584628 (Version 1)
Quarter: 2020Q1

REPORT INFORMATION
  Report Type: Spontaneous
  Country: US (occurrence: US)
  Receive Date: 20200323
  Receipt Date: 20200323
  Transmission Date: 20200409
  Serious: No
  Sender: FDA-Public Use
  Company Number: None

PATIENT
  Age: 55 Year
  Sex: Female

DRUGS (10)
  1. HCL [Concomitant]
  2. LISINOPIRL [Concomitant]
  3. LASOPRAZOLE [Concomitant]
     Active Substance: LANSOPRAZOLE
  4. HYDROXYZ [Concomitant]
     Active Substance: HYDROXYZINE HYDROCHLORIDE
  5. ONDANSETRON [Concomitant]
     Active Substance: ONDANSETRON
  6. ESCITALOPRAM [Concomitant]
     Active Substance: ESCITALOPRAM OXALATE
  7. URSODICAL [Concomitant]
  8. OCALIVA [Suspect]
     Active Substance: OBETICHOLIC ACID
     Dosage: 1 TAB TWICE A WK ORAL
     Route: 048
     Dates: start: 20190715
  9. CLOPIDOGREL [Concomitant]
     Active Substance: CLOPIDOGREL BISULFATE
  10. SACLOFEN [Concomitant]

REACTIONS (1)
  - Myalgia [None]

NARRATIVE: CASE EVENT DATE: 20191101
